FAERS Safety Report 24767488 (Version 1)
Quarter: 2024Q4

REPORT INFORMATION
  Report Type: Spontaneous
  Country: US (occurrence: US)
  Receive Date: 20241223
  Receipt Date: 20241223
  Transmission Date: 20250115
  Serious: No
  Sender: BOEHRINGER INGELHEIM
  Company Number: US-Komodo Health-a23aa000004q93JAAQ

PATIENT
  Sex: Female

DRUGS (1)
  1. SPEVIGO [Suspect]
     Active Substance: SPESOLIMAB-SBZO
     Indication: Generalised pustular psoriasis
     Dosage: TWO 150 MG INJECTIONS

REACTIONS (5)
  - Disturbance in attention [Unknown]
  - Cataract [Unknown]
  - Urinary tract infection [Unknown]
  - Dysuria [Unknown]
  - Weight increased [Unknown]
